FAERS Safety Report 9805896 (Version 2)
Quarter: 2014Q1

REPORT INFORMATION
  Report Type: Spontaneous
  Country: US (occurrence: US)
  Receive Date: 20140109
  Receipt Date: 20140120
  Transmission Date: 20141002
  Serious: Yes (Hospitalization, Other)
  Sender: FDA-Public Use
  Company Number: US-SA-2014SA002473

PATIENT
  Sex: Male

DRUGS (1)
  1. PLAVIX [Suspect]
     Route: 065

REACTIONS (4)
  - Adverse event [Unknown]
  - Atrial fibrillation [Unknown]
  - Vomiting [Unknown]
  - Fluid imbalance [Unknown]
